FAERS Safety Report 23564853 (Version 1)
Quarter: 2024Q1

REPORT INFORMATION
  Report Type: Report from Study
  Country: IT (occurrence: IT)
  Receive Date: 20240226
  Receipt Date: 20240226
  Transmission Date: 20240410
  Serious: Yes (Other)
  Sender: FDA-Public Use
  Company Number: None

PATIENT
  Age: 83 Year
  Sex: Female

DRUGS (7)
  1. RAMIPRIL [Suspect]
     Active Substance: RAMIPRIL
     Indication: Product used for unknown indication
     Dosage: UNK, QD
     Route: 048
     Dates: start: 20231201
  2. ASPIRIN [Concomitant]
     Active Substance: ASPIRIN
     Dosage: IN CHRONIC. 100 MG
     Route: 065
  3. TIROSINT [Concomitant]
     Active Substance: LEVOTHYROXINE SODIUM
     Dosage: IN CHRONIC
     Route: 065
  4. FUROSEMIDE [Concomitant]
     Active Substance: FUROSEMIDE
     Dosage: 50 MILLIGRAM, QOD
     Route: 065
  5. Luvion [Concomitant]
     Dosage: 25 MILLIGRAM, QOD
     Route: 065
  6. Compuna [Concomitant]
     Dosage: 5MG /10MG
     Route: 065
  7. BISOPROLOL [Concomitant]
     Active Substance: BISOPROLOL\BISOPROLOL FUMARATE
     Dosage: UNK
     Route: 065

REACTIONS (2)
  - Tongue oedema [Recovering/Resolving]
  - Laryngeal oedema [Recovering/Resolving]

NARRATIVE: CASE EVENT DATE: 20240124
